FAERS Safety Report 12806274 (Version 2)
Quarter: 2016Q4

REPORT INFORMATION
  Report Type: Spontaneous
  Country: AT (occurrence: AT)
  Receive Date: 20161004
  Receipt Date: 20161013
  Transmission Date: 20170207
  Serious: Yes (Other)
  Sender: FDA-Public Use
  Company Number: AT-SA-2016SA175212

PATIENT
  Sex: Female

DRUGS (1)
  1. LEMTRADA [Suspect]
     Active Substance: ALEMTUZUMAB
     Route: 042
     Dates: start: 201607

REACTIONS (11)
  - Dermatitis bullous [Recovering/Resolving]
  - Lymphadenopathy [Unknown]
  - Pain of skin [Recovering/Resolving]
  - Arthralgia [Unknown]
  - Pyrexia [Unknown]
  - Eye irritation [Unknown]
  - Fatigue [Unknown]
  - Skin lesion [Recovering/Resolving]
  - Mucous membrane disorder [Recovering/Resolving]
  - Skin reaction [Recovering/Resolving]
  - Oedema [Unknown]

NARRATIVE: CASE EVENT DATE: 2016
